FAERS Safety Report 17709438 (Version 2)
Quarter: 2021Q1

REPORT INFORMATION
  Report Type: Spontaneous
  Country: US (occurrence: US)
  Receive Date: 20200427
  Receipt Date: 20210302
  Transmission Date: 20210419
  Serious: Yes (Hospitalization, Other)
  Sender: FDA-Public Use
  Company Number: US-CIPLA LTD.-2020US02837

PATIENT

DRUGS (6)
  1. LYRICA [Suspect]
     Active Substance: PREGABALIN
     Indication: LIMB DISCOMFORT
     Dosage: 300 MILLIGRAM, BID
     Route: 048
     Dates: start: 1995
  2. LYRICA [Suspect]
     Active Substance: PREGABALIN
     Dosage: 300 MILLIGRAM, BID
     Route: 048
  3. GABAPENTIN. [Suspect]
     Active Substance: GABAPENTIN
     Indication: LIMB DISCOMFORT
     Dosage: 300 MILLIGRAM, BID
     Route: 048
     Dates: start: 1995
  4. GABAPENTIN. [Suspect]
     Active Substance: GABAPENTIN
     Dosage: 150 MILLIGRAM, BID
     Route: 048
  5. OXYCODONE [Concomitant]
     Active Substance: OXYCODONE
     Indication: PAIN
     Dosage: 10 MILLIGRAM, QID (FROM 7 YEARS)
     Route: 065
  6. OXYCODONE [Concomitant]
     Active Substance: OXYCODONE
     Dosage: UNK UNK, BID (HALF OF A 5MG TABLET BY MOUTH ONCE IN THE MORNING AND ONCE IN THE EVENING)
     Route: 065
     Dates: start: 202004

REACTIONS (12)
  - Fatigue [Not Recovered/Not Resolved]
  - Gait inability [Unknown]
  - Growth disorder [Unknown]
  - Bradyphrenia [Unknown]
  - Pseudostroke [Not Recovered/Not Resolved]
  - Communication disorder [Not Recovered/Not Resolved]
  - Product use issue [Not Recovered/Not Resolved]
  - Wrong technique in product usage process [Unknown]
  - Dizziness [Unknown]
  - Spinal pain [Unknown]
  - Weight decreased [Unknown]
  - Intentional product use issue [Unknown]

NARRATIVE: CASE EVENT DATE: 201911
